FAERS Safety Report 7790829-4 (Version None)
Quarter: 2011Q3

REPORT INFORMATION
  Report Type: 
  Country: None (occurrence: None)
  Receive Date: 20110930
  Receipt Date: 20110922
  Transmission Date: 20111222
  Serious: No
  Sender: FDA-Public Use
  Company Number: US-RB-032079-11

PATIENT
  Age: 52 Year
  Sex: Female

DRUGS (3)
  1. SUBOXONE [Suspect]
     Dosage: SUBLINGUAL FILM
     Route: 060
     Dates: start: 20100101
  2. SUBOXONE [Suspect]
     Dosage: SUBLINGUAL FILM
     Route: 060
     Dates: start: 20100101
  3. SUBOXONE [Suspect]
     Indication: DRUG DEPENDENCE
     Dosage: SUBLINGUAL FILM
     Route: 060
     Dates: start: 20100101

REACTIONS (8)
  - THYROID DISORDER [None]
  - THERAPEUTIC RESPONSE UNEXPECTED [None]
  - SNEEZING [None]
  - DRUG WITHDRAWAL SYNDROME [None]
  - UNDERDOSE [None]
  - CRYING [None]
  - APATHY [None]
  - ROAD TRAFFIC ACCIDENT [None]
